FAERS Safety Report 9752074 (Version 1)
Quarter: 2013Q4

REPORT INFORMATION
  Report Type: Spontaneous
  Country: AU (occurrence: None)
  Receive Date: 20131211
  Receipt Date: 20131211
  Transmission Date: 20140711
  Serious: Yes (Other)
  Sender: FDA-Public Use
  Company Number: AU-ALKEM-000433

PATIENT
  Sex: 0

DRUGS (4)
  1. METFORMIN (METFORMIN) [Suspect]
     Indication: POLYCYSTIC OVARIES
     Route: 064
  2. QUETIAPINE (QUETIAPINE) [Suspect]
     Indication: BIPOLAR DISORDER
     Route: 064
  3. LITHIUM (LITHIUM) [Suspect]
     Indication: BIPOLAR DISORDER
     Route: 064
  4. PHENELZINE [Suspect]
     Indication: BIPOLAR DISORDER
     Route: 064

REACTIONS (9)
  - Macrosomia [None]
  - Foetal hypokinesia [None]
  - Tachycardia foetal [None]
  - Induced labour [None]
  - Obstructed labour [None]
  - Caesarean section [None]
  - Muscle twitching [None]
  - Drug withdrawal syndrome neonatal [None]
  - Maternal drugs affecting foetus [None]
